FAERS Safety Report 6973642-7 (Version None)
Quarter: 2010Q3

REPORT INFORMATION
  Report Type: 
  Country: None (occurrence: None)
  Receive Date: 20100909
  Receipt Date: 20100902
  Transmission Date: 20110219
  Serious: Yes (Other)
  Sender: FDA-Public Use
  Company Number: DE-AMGEN-KDL424851

PATIENT
  Age: 78 Year
  Sex: Female

DRUGS (3)
  1. PROLIA [Suspect]
     Indication: OSTEOPOROSIS
     Route: 058
     Dates: start: 20100622, end: 20100622
  2. TILIDINE [Concomitant]
  3. CACIT VITAMINE D3 [Concomitant]
     Route: 048

REACTIONS (9)
  - CARDIOVASCULAR DISORDER [None]
  - CATARACT [None]
  - ECZEMA [None]
  - FATIGUE [None]
  - LISTLESS [None]
  - MALAISE [None]
  - PAIN [None]
  - PRURITUS [None]
  - VISUAL ACUITY REDUCED [None]
